FAERS Safety Report 7337090-2 (Version None)
Quarter: 2011Q1

REPORT INFORMATION
  Report Type: 
  Country: None (occurrence: None)
  Receive Date: 20110308
  Receipt Date: 20110223
  Transmission Date: 20110831
  Serious: Yes (Other)
  Sender: FDA-Public Use
  Company Number: PHHY2011FR15439

PATIENT
  Sex: Female

DRUGS (3)
  1. EXELON [Suspect]
     Dosage: 9.6 MG, QD
     Route: 062
  2. EXELON [Suspect]
     Dosage: 4.6 MG, QD
     Route: 062
  3. FENOFIBRATE [Concomitant]
     Dosage: UNK

REACTIONS (4)
  - FATIGUE [None]
  - TRANSAMINASES INCREASED [None]
  - CONFUSIONAL STATE [None]
  - HEPATITIS ACUTE [None]
